FAERS Safety Report 7762751-0 (Version None)
Quarter: 2011Q3

REPORT INFORMATION
  Report Type: 
  Country: None (occurrence: None)
  Receive Date: 20110920
  Receipt Date: 20110916
  Transmission Date: 20111222
  Serious: No
  Sender: FDA-Public Use
  Company Number: US-TEVA-301381USA

PATIENT
  Sex: Female
  Weight: 76.726 kg

DRUGS (2)
  1. WEIGHT LOSS PILL [Suspect]
     Indication: WEIGHT DECREASED
  2. PLAN B ONE-STEP [Suspect]
     Indication: POST COITAL CONTRACEPTION
     Dosage: 1.5 MILLIGRAM;
     Route: 048
     Dates: start: 20110804, end: 20110804

REACTIONS (6)
  - NASOPHARYNGITIS [None]
  - BREAST PAIN [None]
  - PREGNANCY AFTER POST COITAL CONTRACEPTION [None]
  - DRUG INEFFECTIVE [None]
  - NAUSEA [None]
  - VOMITING [None]
